FAERS Safety Report 8198955-5 (Version None)
Quarter: 2012Q1

REPORT INFORMATION
  Report Type: 
  Country: None (occurrence: None)
  Receive Date: 20120309
  Receipt Date: 20120119
  Transmission Date: 20120608
  Serious: Yes (Hospitalization)
  Sender: FDA-Public Use
  Company Number: GR-GLAXOSMITHKLINE-B0776846A

PATIENT
  Age: 69 Year
  Sex: Male

DRUGS (1)
  1. ARZERRA [Suspect]
     Indication: CHRONIC LYMPHOCYTIC LEUKAEMIA
     Route: 065
     Dates: start: 20111117

REACTIONS (4)
  - HERPES VIRUS INFECTION [None]
  - RESPIRATORY TRACT INFECTION [None]
  - HEPATOMEGALY [None]
  - SPLENOMEGALY [None]
